FAERS Safety Report 4537048-2 (Version None)
Quarter: 2004Q4

REPORT INFORMATION
  Report Type: 
  Country: None (occurrence: None)
  Receive Date: 20041223
  Receipt Date: 20040921
  Transmission Date: 20050328
  Serious: No
  Sender: FDA-Public Use
  Company Number: US-BRISTOL-MYERS SQUIBB COMPANY-12709366

PATIENT
  Sex: Male

DRUGS (1)
  1. REYATAZ [Suspect]
     Dosage: INITIATED IN MAR OR APR-2004
     Route: 048
     Dates: start: 20040101

REACTIONS (1)
  - DYSPNOEA [None]
